FAERS Safety Report 11749146 (Version 1)
Quarter: 2015Q4

REPORT INFORMATION
  Report Type: Spontaneous
  Country: US (occurrence: None)
  Receive Date: 20151117
  Receipt Date: 20151117
  Transmission Date: 20160304
  Serious: Yes (Other)
  Sender: FDA-Public Use
  Company Number: None

PATIENT
  Age: 69 Year
  Sex: Female
  Weight: 86.18 kg

DRUGS (11)
  1. DELYSUM CHILDRENS 12 HR COUGH SYRUP [Concomitant]
  2. CLARITIN-D 12 HR [Concomitant]
  3. ASPIRIN. [Concomitant]
     Active Substance: ASPIRIN
  4. FISH OIL [Concomitant]
     Active Substance: FISH OIL
  5. GENERIC SUDAFED [Concomitant]
  6. ADVIL [Concomitant]
     Active Substance: IBUPROFEN
  7. ALBUTEROL. [Concomitant]
     Active Substance: ALBUTEROL
  8. SPIRIVA RESPIMAT [Suspect]
     Active Substance: TIOTROPIUM BROMIDE
     Indication: DRUG THERAPY
     Dosage: 1 INHALE  ONCE DAILY  TAKEN BY MOUTH
     Route: 048
     Dates: start: 20151101, end: 20151113
  9. VITAMIN B-12 COMPLEX [Concomitant]
  10. FLOVENT [Concomitant]
     Active Substance: FLUTICASONE PROPIONATE
  11. VENTOLIN RESCUE INHALER [Concomitant]

REACTIONS (5)
  - Confusional state [None]
  - Amnesia [None]
  - Dizziness [None]
  - Vision blurred [None]
  - Agitation [None]

NARRATIVE: CASE EVENT DATE: 20151101
